FAERS Safety Report 9743675 (Version 1)
Quarter: 2013Q4

REPORT INFORMATION
  Report Type: Spontaneous
  Country: US (occurrence: US)
  Receive Date: 20131210
  Receipt Date: 20131210
  Transmission Date: 20140711
  Serious: No
  Sender: FDA-Public Use
  Company Number: US-BIOGENIDEC-2013BI093517

PATIENT
  Sex: Female

DRUGS (9)
  1. TECFIDERA [Suspect]
     Indication: MULTIPLE SCLEROSIS
     Route: 048
  2. FAMOTIDINE [Concomitant]
  3. LAMOTRIGINE [Concomitant]
  4. PROVIGIL [Concomitant]
  5. SYNTHROID [Concomitant]
  6. METHYLPREDNISOLONE [Concomitant]
  7. ATORVASTATIN CALCIUM [Concomitant]
  8. LORATADINE [Concomitant]
  9. DIAZEPAM [Concomitant]

REACTIONS (2)
  - Weight increased [Unknown]
  - Nausea [Unknown]
